FAERS Safety Report 15886548 (Version 2)
Quarter: 2019Q2

REPORT INFORMATION
  Report Type: Report from Study
  Country: US (occurrence: US)
  Receive Date: 20190129
  Receipt Date: 20190528
  Transmission Date: 20190711
  Serious: Yes (Other)
  Sender: FDA-Public Use
  Company Number: US-ACTELION-A-US2019-185380

PATIENT
  Age: 62 Year
  Sex: Male

DRUGS (14)
  1. IRON [Concomitant]
     Active Substance: IRON
  2. PREDNISONE. [Concomitant]
     Active Substance: PREDNISONE
  3. BUPROPION. [Concomitant]
     Active Substance: BUPROPION
  4. IBUPROFEN. [Concomitant]
     Active Substance: IBUPROFEN
  5. OMEPRAZOLE. [Concomitant]
     Active Substance: OMEPRAZOLE
  6. FERROUS SULFATE. [Concomitant]
     Active Substance: FERROUS SULFATE
  7. TRIAMTERENE AND HYDROCHLOROTHIAZID [Concomitant]
     Active Substance: HYDROCHLOROTHIAZIDE\TRIAMTERENE
  8. GABAPENTIN. [Concomitant]
     Active Substance: GABAPENTIN
  9. HCTZ [Concomitant]
     Active Substance: HYDROCHLOROTHIAZIDE
  10. METHOTREXATE. [Concomitant]
     Active Substance: METHOTREXATE
  11. TADALAFIL. [Suspect]
     Active Substance: TADALAFIL
     Indication: PULMONARY ARTERIAL HYPERTENSION
     Dosage: 40 MG, BID
     Route: 065
     Dates: start: 20181115
  12. CEVIMELINE. [Concomitant]
     Active Substance: CEVIMELINE
  13. SMZ (CO) [Concomitant]
  14. OPSUMIT [Suspect]
     Active Substance: MACITENTAN
     Indication: PULMONARY ARTERIAL HYPERTENSION
     Dosage: 10 MG, QD
     Route: 048
     Dates: start: 20180117

REACTIONS (2)
  - Deafness [Unknown]
  - Localised infection [Unknown]

NARRATIVE: CASE EVENT DATE: 201905
